FAERS Safety Report 4356735-2 (Version None)
Quarter: 2004Q2

REPORT INFORMATION
  Report Type: 
  Country: None (occurrence: None)
  Receive Date: 20040506
  Receipt Date: 20040422
  Transmission Date: 20050107
  Serious: Yes (Death, Hospitalization)
  Sender: FDA-Public Use
  Company Number: 2004AP01863

PATIENT
  Age: 63 Year
  Sex: Female

DRUGS (29)
  1. IRESSA [Suspect]
     Indication: LUNG SQUAMOUS CELL CARCINOMA STAGE UNSPECIFIED
     Dosage: 250 MG DAILY PO
     Route: 048
     Dates: start: 20040217, end: 20040322
  2. IRESSA [Suspect]
     Indication: NON-SMALL CELL LUNG CANCER
     Dosage: 250 MG DAILY PO
     Route: 048
     Dates: start: 20040217, end: 20040322
  3. TRANSAMIN [Concomitant]
  4. ADONA [Concomitant]
  5. MUCODYNE [Concomitant]
  6. THEO-DUR [Concomitant]
  7. MAGLAX [Concomitant]
  8. 1% CODEINE PHOSPHATE [Concomitant]
  9. HOKUNALIN [Concomitant]
  10. UREPEARL [Concomitant]
  11. THYRADIN [Concomitant]
  12. HIRNAMIN [Concomitant]
  13. LORAZEPAM [Concomitant]
  14. ANAFRANIL [Concomitant]
  15. GRAMALIL [Concomitant]
  16. ALOSENN [Concomitant]
  17. NELBON [Concomitant]
  18. DEPAS [Concomitant]
  19. RHYTHMY [Concomitant]
  20. BROCIN [Concomitant]
  21. APRICOT KERNEL WATER [Concomitant]
  22. OXYGEN [Concomitant]
  23. LOXONIN [Concomitant]
  24. PAXIL [Concomitant]
  25. RISPERDAL [Concomitant]
  26. AZUPLA [Concomitant]
  27. GEMZAR [Concomitant]
  28. TAXOL [Concomitant]
  29. PARAPLATIN [Concomitant]

REACTIONS (10)
  - ANTIBODY TEST ABNORMAL [None]
  - BACK PAIN [None]
  - CARDIAC MURMUR [None]
  - DRUG INEFFECTIVE [None]
  - DRY SKIN [None]
  - HAEMOPTYSIS [None]
  - LUNG NEOPLASM MALIGNANT [None]
  - MALIGNANT NEOPLASM PROGRESSION [None]
  - PNEUMONIA BACTERIAL [None]
  - RESPIRATORY FAILURE [None]
